FAERS Safety Report 19195822 (Version 1)
Quarter: 2021Q2

REPORT INFORMATION
  Report Type: Spontaneous
  Country: JP (occurrence: JP)
  Receive Date: 20210429
  Receipt Date: 20210429
  Transmission Date: 20210717
  Serious: Yes (Death)
  Sender: FDA-Public Use
  Company Number: JP-GUERBET-JP-20210056

PATIENT
  Age: 70 Year
  Sex: Male

DRUGS (2)
  1. HISTOACRYL [Concomitant]
     Active Substance: ENBUCRILATE
     Indication: SCLEROTHERAPY
     Route: 065
  2. LIPIODOL [Suspect]
     Active Substance: ETHIODIZED OIL
     Indication: SCLEROTHERAPY
     Route: 065

REACTIONS (2)
  - Varicose vein ruptured [Fatal]
  - Product use in unapproved indication [Fatal]
